FAERS Safety Report 5991142-8 (Version None)
Quarter: 2008Q4

REPORT INFORMATION
  Report Type: 
  Country: None (occurrence: None)
  Receive Date: 20081211
  Receipt Date: 20080423
  Transmission Date: 20090506
  Serious: No
  Sender: FDA-Public Use
  Company Number: US-AMGEN-KDL276130

PATIENT
  Sex: Male

DRUGS (3)
  1. ENBREL [Suspect]
     Indication: RHEUMATOID ARTHRITIS
     Route: 058
     Dates: start: 20080211
  2. METHOTREXATE [Concomitant]
     Route: 048
     Dates: start: 20080211
  3. ASPIRIN [Concomitant]

REACTIONS (4)
  - INCREASED TENDENCY TO BRUISE [None]
  - INJECTION SITE HAEMATOMA [None]
  - INJECTION SITE HAEMORRHAGE [None]
  - RENAL PAIN [None]
